FAERS Safety Report 18603923 (Version 1)
Quarter: 2020Q4

REPORT INFORMATION
  Report Type: Spontaneous
  Country: US (occurrence: US)
  Receive Date: 20201210
  Receipt Date: 20201210
  Transmission Date: 20210114
  Serious: No
  Sender: FDA-Public Use
  Company Number: None

PATIENT
  Age: 10 Year
  Sex: Male
  Weight: 28 kg

DRUGS (1)
  1. NORDITROPIN [Suspect]
     Active Substance: SOMATROPIN
     Indication: SHORT STATURE
     Dosage: FREQUENCY: 6 NIGHTS PER WEEK
     Route: 058
     Dates: start: 20201122, end: 20201210

REACTIONS (1)
  - Urticaria [None]

NARRATIVE: CASE EVENT DATE: 20201209
